FAERS Safety Report 7257668-4 (Version None)
Quarter: 2011Q1

REPORT INFORMATION
  Report Type: 
  Country: None (occurrence: None)
  Receive Date: 20110129
  Receipt Date: 20100608
  Transmission Date: 20110831
  Serious: No
  Sender: FDA-Public Use
  Company Number: US-ABBOTT-10P-163-0644126-00

PATIENT
  Sex: Female
  Weight: 77.18 kg

DRUGS (4)
  1. PAROXETINE HCL [Concomitant]
     Indication: DEPRESSION
  2. BIOIDENTICAL HORMONE REPLACEMENT [Concomitant]
     Indication: HYSTERECTOMY
  3. HUMIRA [Suspect]
     Indication: PSORIASIS
     Dates: start: 20100414
  4. OMEPRAZOLE [Concomitant]
     Indication: DYSPEPSIA

REACTIONS (7)
  - OROPHARYNGEAL PAIN [None]
  - INJECTION SITE HAEMORRHAGE [None]
  - INCORRECT DOSE ADMINISTERED [None]
  - DRUG DOSE OMISSION [None]
  - URINARY RETENTION [None]
  - WRONG TECHNIQUE IN DRUG USAGE PROCESS [None]
  - MICTURITION URGENCY [None]
